FAERS Safety Report 5734700-8 (Version None)
Quarter: 2008Q2

REPORT INFORMATION
  Report Type: 
  Country: None (occurrence: None)
  Receive Date: 20080512
  Receipt Date: 20080501
  Transmission Date: 20081010
  Serious: Yes (Hospitalization)
  Sender: FDA-Public Use
  Company Number: US-JNJFOC-20050305429

PATIENT
  Sex: Female

DRUGS (3)
  1. TYLENOL [Suspect]
     Indication: PHARYNGOLARYNGEAL PAIN
  2. TYLENOL [Suspect]
     Indication: PYREXIA
     Dosage: {3000 MG PER DAY
  3. TYLENOL [Suspect]
     Indication: MIGRAINE

REACTIONS (25)
  - BILIARY CIRRHOSIS PRIMARY [None]
  - BUDD-CHIARI SYNDROME [None]
  - CRYPTOGENIC CIRRHOSIS [None]
  - HAEMATOCRIT DECREASED [None]
  - HAEMOGLOBIN DECREASED [None]
  - HELICOBACTER GASTRITIS [None]
  - HEPATITIS [None]
  - HIATUS HERNIA [None]
  - HYPERGLYCAEMIA [None]
  - HYPOTENSION [None]
  - LIVER INJURY [None]
  - LIVER TRANSPLANT [None]
  - LIVER TRANSPLANT REJECTION [None]
  - LYMPHOEDEMA [None]
  - OVARIAN CYST [None]
  - PERITONITIS BACTERIAL [None]
  - PHARYNGITIS [None]
  - PLATELET COUNT DECREASED [None]
  - PORTAL HYPERTENSION [None]
  - PORTAL VEIN THROMBOSIS [None]
  - POST PROCEDURAL COMPLICATION [None]
  - PULMONARY OEDEMA [None]
  - RESPIRATORY FAILURE [None]
  - SPLENOMEGALY [None]
  - TONSILLITIS STREPTOCOCCAL [None]
